FAERS Safety Report 16742019 (Version 2)
Quarter: 2020Q2

REPORT INFORMATION
  Report Type: Report from Study
  Country: US (occurrence: US)
  Receive Date: 20190826
  Receipt Date: 20200427
  Transmission Date: 20200713
  Serious: Yes (Other)
  Sender: FDA-Public Use
  Company Number: US-ACTELION-A-NJ2019-194659

PATIENT
  Age: 64 Year
  Sex: Female

DRUGS (28)
  1. DIVALPROEX [Concomitant]
     Active Substance: DIVALPROEX SODIUM
  2. ASPIRIN. [Concomitant]
     Active Substance: ASPIRIN
  3. BIOTIN [Concomitant]
     Active Substance: BIOTIN
  4. WARFARIN [Concomitant]
     Active Substance: WARFARIN
  5. ALVESCO [Concomitant]
     Active Substance: CICLESONIDE
  6. FLUOXETINE [Concomitant]
     Active Substance: FLUOXETINE HYDROCHLORIDE
  7. QUETIAPINE. [Concomitant]
     Active Substance: QUETIAPINE
  8. FLUCONAZOLE. [Concomitant]
     Active Substance: FLUCONAZOLE
  9. ALBUTEROL HFA [Concomitant]
     Active Substance: ALBUTEROL SULFATE
  10. OPSUMIT [Suspect]
     Active Substance: MACITENTAN
     Indication: PULMONARY ARTERIAL HYPERTENSION
     Dosage: 10 MG, QD
     Route: 048
     Dates: start: 201602
  11. ATORVASTATIN [Concomitant]
     Active Substance: ATORVASTATIN
  12. COUMADIN [Concomitant]
     Active Substance: WARFARIN SODIUM
  13. ACLOVATE [Concomitant]
     Active Substance: ALCLOMETASONE DIPROPIONATE
     Route: 061
  14. DOCUSATE [Concomitant]
     Active Substance: DOCUSATE
  15. TADALAFIL. [Concomitant]
     Active Substance: TADALAFIL
  16. LISINOPRIL. [Concomitant]
     Active Substance: LISINOPRIL
  17. SODIUM [Concomitant]
     Active Substance: SODIUM
  18. FERROUS SULFATE. [Concomitant]
     Active Substance: FERROUS SULFATE
  19. BUPROPION. [Concomitant]
     Active Substance: BUPROPION
  20. VENTOLIN HFA [Concomitant]
     Active Substance: ALBUTEROL SULFATE
  21. TRAMADOL. [Concomitant]
     Active Substance: TRAMADOL
  22. PANTOPRAZOLE [Concomitant]
     Active Substance: PANTOPRAZOLE
  23. MVI [Concomitant]
     Active Substance: VITAMINS
  24. TRIAMCINOLONE [Concomitant]
     Active Substance: TRIAMCINOLONE
     Route: 061
  25. OMEPRAZOLE. [Concomitant]
     Active Substance: OMEPRAZOLE
  26. SILDENAFIL. [Concomitant]
     Active Substance: SILDENAFIL
  27. PROMETHAZINE DM [Concomitant]
     Active Substance: DEXTROMETHORPHAN HYDROBROMIDE\PROMETHAZINE HYDROCHLORIDE
  28. VOLTAREN [Concomitant]
     Active Substance: DICLOFENAC SODIUM
     Route: 061

REACTIONS (8)
  - Weight bearing difficulty [Unknown]
  - Chest pain [Recovered/Resolved]
  - Pain [Unknown]
  - Gastritis [Unknown]
  - Gastrooesophageal reflux disease [Unknown]
  - Fall [Unknown]
  - Joint injury [Unknown]
  - Joint swelling [Unknown]

NARRATIVE: CASE EVENT DATE: 20190719
